FAERS Safety Report 13427123 (Version 4)
Quarter: 2017Q3

REPORT INFORMATION
  Report Type: Spontaneous
  Country: MX (occurrence: MX)
  Receive Date: 20170411
  Receipt Date: 20170721
  Transmission Date: 20171127
  Serious: Yes (Other)
  Sender: FDA-Public Use
  Company Number: MX-AMGEN-MEXSP2017054171

PATIENT
  Age: 20 Year
  Sex: Male
  Weight: 89 kg

DRUGS (1)
  1. BLINCYTO [Suspect]
     Active Substance: BLINATUMOMAB
     Indication: BLAST CELLS PRESENT
     Dosage: 15 MG/M2, 5 CYCLES OF 28 DAYS
     Route: 042
     Dates: start: 20160207

REACTIONS (6)
  - Off label use [Unknown]
  - Pyrexia [Recovered/Resolved]
  - Tremor [Recovered/Resolved]
  - Thrombocytopenia [Recovered/Resolved]
  - Hepatotoxicity [Recovered/Resolved]
  - Headache [Recovered/Resolved]

NARRATIVE: CASE EVENT DATE: 201602
